APPROVED DRUG PRODUCT: MESALAMINE
Active Ingredient: MESALAMINE
Strength: 1.2GM
Dosage Form/Route: TABLET, DELAYED RELEASE;ORAL
Application: A203817 | Product #001 | TE Code: AB
Applicant: ACTAVIS LABORATORIES FL INC AN INDIRECT WHOLLY OWNED SUB OF TEVA PHARMACEUTICALS USA INC
Approved: Mar 23, 2018 | RLD: No | RS: No | Type: RX